FAERS Safety Report 9788063 (Version 4)
Quarter: 2014Q1

REPORT INFORMATION
  Report Type: Spontaneous
  Country: FR (occurrence: FR)
  Receive Date: 20131230
  Receipt Date: 20140121
  Transmission Date: 20141002
  Serious: Yes (Hospitalization, Other)
  Sender: FDA-Public Use
  Company Number: FR-CELGENEUS-056-21880-13113011

PATIENT
  Age: 76 Year
  Sex: Female
  Weight: 62 kg

DRUGS (9)
  1. REVLIMID [Suspect]
     Indication: PLASMA CELL MYELOMA
     Dosage: 25 MILLIGRAM
     Route: 048
     Dates: start: 20131021, end: 20131110
  2. MLN9708 [Suspect]
     Indication: PLASMA CELL MYELOMA
     Dosage: 4 MILLIGRAM
     Route: 048
     Dates: start: 20131021, end: 20131112
  3. DEXAMETHASONE [Suspect]
     Indication: PLASMA CELL MYELOMA
     Dosage: 40 MILLIGRAM
     Route: 048
     Dates: start: 20131021, end: 20131112
  4. TILDIEM [Concomitant]
     Indication: PRODUCT USED FOR UNKNOWN INDICATION
     Dosage: 200 MILLIGRAM
     Route: 065
  5. TILDIEM [Concomitant]
     Indication: LUNG DISORDER
  6. KARDEGIC [Concomitant]
     Indication: PRODUCT USED FOR UNKNOWN INDICATION
     Dosage: 75 MILLIGRAM
     Route: 065
  7. KARDEGIC [Concomitant]
     Indication: LUNG DISORDER
  8. ATACAND [Concomitant]
     Indication: PRODUCT USED FOR UNKNOWN INDICATION
     Dosage: 8 MILLIGRAM
     Route: 065
  9. ATACAND [Concomitant]
     Indication: LUNG DISORDER

REACTIONS (1)
  - Lobar pneumonia [Recovered/Resolved]
